FAERS Safety Report 23860529 (Version 1)
Quarter: 2024Q2

REPORT INFORMATION
  Report Type: Report from Study
  Country: US (occurrence: US)
  Receive Date: 20240516
  Receipt Date: 20240516
  Transmission Date: 20240716
  Serious: Yes (Other)
  Sender: FDA-Public Use
  Company Number: US-ABBVIE-5755121

PATIENT
  Sex: Female

DRUGS (2)
  1. UBRELVY [Suspect]
     Active Substance: UBROGEPANT
     Indication: Migraine
     Dosage: FORM STRENGTH: 50 MG
     Route: 048
     Dates: start: 2022
  2. MORPHINE [Concomitant]
     Active Substance: MORPHINE
     Indication: Product used for unknown indication
     Dates: start: 2024

REACTIONS (3)
  - Intervertebral disc protrusion [Recovering/Resolving]
  - Drug ineffective [Unknown]
  - Spinal column injury [Unknown]

NARRATIVE: CASE EVENT DATE: 20230101
